FAERS Safety Report 9252669 (Version 1)
Quarter: 2013Q1

REPORT INFORMATION
  Report Type: Spontaneous
  Country: US (occurrence: None)
  Receive Date: 20130305
  Receipt Date: 20130305
  Transmission Date: 20140127
  Serious: Yes (Hospitalization)
  Sender: FDA-Public Use
  Company Number: 163-21880-12042094 (0)

PATIENT
  Age: 55 Year
  Sex: Female

DRUGS (9)
  1. REVLIMID [Suspect]
     Indication: ACUTE MYELOID LEUKAEMIA
     Route: 048
     Dates: start: 20120402
  2. CIPRO (CIPROFLOXACIN) [Concomitant]
  3. FAMCICLOVIR (FAMCICLOVIR) [Concomitant]
  4. CLINDAMYCIN (CLINDAMYCIN) [Concomitant]
  5. NORTRIPTYLINE (NORTRIPTYLINE) [Concomitant]
  6. ZOLPIDEM TARTRATE (ZOLPIDEM TARTRATE) [Concomitant]
  7. ESTRACE (ESTRADIOL) [Concomitant]
  8. NOXAFIL (POSACONAZOLE) [Concomitant]
  9. CYCLOBENZAPRINE (CYCLOBENZAPRINE) [Concomitant]

REACTIONS (2)
  - Pyrexia [None]
  - Hepatic enzyme increased [None]
